FAERS Safety Report 9893969 (Version 2)
Quarter: 2014Q1

REPORT INFORMATION
  Report Type: Spontaneous
  Country: US (occurrence: US)
  Receive Date: 20140213
  Receipt Date: 20140220
  Transmission Date: 20141002
  Serious: No
  Sender: FDA-Public Use
  Company Number: US-PFIZER INC-2014036867

PATIENT
  Age: 47 Year
  Sex: Female
  Weight: 58.96 kg

DRUGS (1)
  1. CLEOCIN [Suspect]
     Indication: BACTERIAL INFECTION
     Dosage: 100 MG, 1X/DAY
     Route: 067
     Dates: start: 20140131

REACTIONS (2)
  - Burning sensation [Recovered/Resolved]
  - Pain [Recovered/Resolved]
